FAERS Safety Report 25651978 (Version 1)
Quarter: 2025Q3

REPORT INFORMATION
  Report Type: Spontaneous
  Country: CN (occurrence: CN)
  Receive Date: 20250806
  Receipt Date: 20250806
  Transmission Date: 20251020
  Serious: Yes (Other)
  Sender: ABBVIE
  Company Number: CN-ABBVIE-6398133

PATIENT
  Age: 25 Year
  Sex: Male

DRUGS (2)
  1. POTASSIUM CHLORIDE [Suspect]
     Active Substance: POTASSIUM CHLORIDE
     Indication: Product used for unknown indication
     Route: 048
     Dates: start: 20220221
  2. CARBON MONOXIDE [Suspect]
     Active Substance: CARBON MONOXIDE
     Indication: Product used for unknown indication
     Route: 055

REACTIONS (1)
  - Suicide attempt [Unknown]

NARRATIVE: CASE EVENT DATE: 20220221
